FAERS Safety Report 21578697 (Version 2)
Quarter: 2022Q4

REPORT INFORMATION
  Report Type: Spontaneous
  Country: US (occurrence: US)
  Receive Date: 20221110
  Receipt Date: 20221123
  Transmission Date: 20230112
  Serious: No
  Sender: FDA-Public Use
  Company Number: US-GILEAD-2022-0604596

PATIENT
  Age: 29 Year
  Sex: Male
  Weight: 74.376 kg

DRUGS (1)
  1. DESCOVY [Suspect]
     Active Substance: EMTRICITABINE\TENOFOVIR ALAFENAMIDE FUMARATE
     Indication: Prophylaxis against HIV infection
     Dosage: 200/25, 1 DOSAGE FORM, QD
     Route: 048
     Dates: start: 20220509, end: 20220901

REACTIONS (1)
  - Liver function test increased [Recovered/Resolved]
